FAERS Safety Report 21157522 (Version 1)
Quarter: 2022Q3

REPORT INFORMATION
  Report Type: Spontaneous
  Country: US (occurrence: None)
  Receive Date: 20220731
  Receipt Date: 20220731
  Transmission Date: 20221027
  Serious: No
  Sender: FDA-Public Use
  Company Number: None

PATIENT
  Age: 59 Year
  Sex: Female

DRUGS (8)
  1. ROZLYTREK [Suspect]
     Active Substance: ENTRECTINIB
     Indication: Lung neoplasm malignant
     Dosage: FREQUENCY : DAILY;?
     Route: 048
  2. levothyroxine 100 mcg tab [Concomitant]
  3. lorazepam 0.5 mg tab [Concomitant]
  4. percocet 5-325 tab [Concomitant]
  5. rozlytrek 200 mg tab [Concomitant]
  6. trazodone 100 mg tab [Concomitant]
  7. TYLENOL [Concomitant]
     Active Substance: ACETAMINOPHEN
  8. zolpidem tartarate 12. mg tab [Concomitant]

REACTIONS (2)
  - Pulmonary embolism [None]
  - Chest tube insertion [None]

NARRATIVE: CASE EVENT DATE: 20220724
